FAERS Safety Report 25729395 (Version 2)
Quarter: 2025Q3

REPORT INFORMATION
  Report Type: Spontaneous
  Country: JP (occurrence: JP)
  Receive Date: 20250827
  Receipt Date: 20250828
  Transmission Date: 20251020
  Serious: Yes (Other)
  Sender: REGENERON
  Company Number: JP-BAYER-2025A112764

PATIENT
  Age: 78 Year
  Sex: Male

DRUGS (5)
  1. EYLEA HD [Suspect]
     Active Substance: AFLIBERCEPT
     Indication: Age-related macular degeneration
     Route: 031
     Dates: start: 202501
  2. EYLEA HD [Suspect]
     Active Substance: AFLIBERCEPT
     Route: 031
  3. EYLEA HD [Suspect]
     Active Substance: AFLIBERCEPT
     Route: 031
  4. EYLEA HD [Suspect]
     Active Substance: AFLIBERCEPT
     Route: 031
  5. EYLEA HD [Suspect]
     Active Substance: AFLIBERCEPT
     Route: 031

REACTIONS (2)
  - Subretinal fluid [Unknown]
  - Retinal neovascularisation [Unknown]
